FAERS Safety Report 8360183-8 (Version None)
Quarter: 2012Q2

REPORT INFORMATION
  Report Type: 
  Country: None (occurrence: None)
  Receive Date: 20120515
  Receipt Date: 20120505
  Transmission Date: 20120825
  Serious: Yes (Other)
  Sender: FDA-Public Use
  Company Number: IT-JNJFOC-20120406912

PATIENT
  Sex: Female
  Weight: 86 kg

DRUGS (10)
  1. LITHIUM CARBONATE [Suspect]
     Indication: PSYCHOTIC DISORDER
     Route: 048
  2. RISPERDAL [Suspect]
     Indication: SELF INJURIOUS BEHAVIOUR
     Route: 048
     Dates: start: 20120412, end: 20120412
  3. FLUVOXAMINE MALEATE [Concomitant]
     Indication: PSYCHOTIC DISORDER
     Route: 048
  4. LITHIUM CARBONATE [Suspect]
     Route: 048
  5. LITHIUM CARBONATE [Suspect]
     Route: 048
     Dates: start: 20120412, end: 20120412
  6. LORAZEPAM [Suspect]
     Indication: MULTIPLE DRUG OVERDOSE INTENTIONAL
     Route: 048
     Dates: start: 20120412, end: 20120412
  7. DEPAKENE [Concomitant]
     Indication: PSYCHOTIC DISORDER
     Route: 048
  8. CLONAZEPAM [Suspect]
     Indication: MULTIPLE DRUG OVERDOSE INTENTIONAL
     Route: 048
     Dates: start: 20120412, end: 20120412
  9. LITHIUM CARBONATE [Suspect]
     Indication: MULTIPLE DRUG OVERDOSE INTENTIONAL
     Route: 048
     Dates: start: 20120412, end: 20120412
  10. IBRUPROFEN [Suspect]
     Indication: MULTIPLE DRUG OVERDOSE INTENTIONAL
     Route: 048
     Dates: start: 20120412, end: 20120412

REACTIONS (4)
  - SELF INJURIOUS BEHAVIOUR [None]
  - MULTIPLE DRUG OVERDOSE INTENTIONAL [None]
  - SLUGGISHNESS [None]
  - SOPOR [None]
